FAERS Safety Report 16112374 (Version 1)
Quarter: 2019Q2

REPORT INFORMATION
  Report Type: Spontaneous
  Country: US (occurrence: US)
  Receive Date: 20190324
  Receipt Date: 20190324
  Transmission Date: 20190711
  Serious: Yes (Disabling, Other)
  Sender: FDA-Public Use
  Company Number: None

PATIENT
  Age: 64 Year
  Sex: Female
  Weight: 86.4 kg

DRUGS (7)
  1. FLUOXETINE [Concomitant]
     Active Substance: FLUOXETINE HYDROCHLORIDE
  2. VITAMIN D NOS [Concomitant]
     Active Substance: VITAMIN D NOS
  3. OMEGA-3 ACIDS [Concomitant]
     Active Substance: OMEGA-3 FATTY ACIDS
  4. HCTZ [Concomitant]
     Active Substance: HYDROCHLOROTHIAZIDE
  5. MULTI VITAMIN FOR WOMEN [Concomitant]
  6. LOSARTAN 100 MG TAB LEG, GENERIC FOR COZAAR 100 MG TAB [Suspect]
     Active Substance: LOSARTAN
     Indication: BLOOD PRESSURE ABNORMAL
     Dosage: ?          QUANTITY:1 TABLET(S);?
     Route: 048
     Dates: start: 20181117, end: 20190103
  7. KLOR-CON [Concomitant]
     Active Substance: POTASSIUM CHLORIDE

REACTIONS (5)
  - Hypertension [None]
  - Headache [None]
  - Recalled product administered [None]
  - Epistaxis [None]
  - Head discomfort [None]

NARRATIVE: CASE EVENT DATE: 20181203
